FAERS Safety Report 9422000 (Version 1)
Quarter: 2013Q3

REPORT INFORMATION
  Report Type: Spontaneous
  Country: US (occurrence: US)
  Receive Date: 20130726
  Receipt Date: 20130726
  Transmission Date: 20140515
  Serious: Yes (Hospitalization)
  Sender: FDA-Public Use
  Company Number: US-BAYER-2013-088182

PATIENT
  Age: 50 Year
  Sex: Female

DRUGS (10)
  1. YASMIN [Suspect]
  2. LEVAQUIN [Concomitant]
  3. SINGULAIR [Concomitant]
  4. ALBUTEROL [Concomitant]
  5. ZIAC [Concomitant]
     Dosage: 2.5 MG, ONCE A DAY
  6. BISOPROLOL W/HYDROCHLOROTHIAZIDE [Concomitant]
     Dosage: 2.5-6
  7. DEMEROL [Concomitant]
  8. PHENERGAN [Concomitant]
  9. ECOTRIN [Concomitant]
  10. ROBITUSSIN WITH CODEINE [Concomitant]

REACTIONS (2)
  - Pulmonary embolism [None]
  - Deep vein thrombosis [None]
